FAERS Safety Report 5010206-9 (Version None)
Quarter: 2006Q2

REPORT INFORMATION
  Report Type: 
  Country: None (occurrence: None)
  Receive Date: 20060404
  Receipt Date: 20051116
  Transmission Date: 20061013
  Serious: Yes (Hospitalization)
  Sender: FDA-Public Use
  Company Number: US_0510122722

PATIENT
  Sex: Male

DRUGS (1)
  1. CYMBALTA [Suspect]
     Dosage: 60 MG
     Dates: start: 20050810

REACTIONS (4)
  - BACK PAIN [None]
  - DIZZINESS [None]
  - HYPERHIDROSIS [None]
  - VOMITING [None]
